FAERS Safety Report 8813428 (Version 1)
Quarter: 2012Q4

REPORT INFORMATION
  Report Type: 
  Country: ES (occurrence: ES)
  Receive Date: 20120927
  Receipt Date: 20120927
  Transmission Date: 20130627
  Serious: Yes (Hospitalization)
  Sender: FDA-Public Use
  Company Number: ES-MYLANLABS-2012S1019459

PATIENT
  Age: 36 Year
  Sex: Female

DRUGS (7)
  1. DARUNAVIR [Suspect]
     Indication: HIV INFECTION
     Dosage: 600 mg/12 hours
     Route: 065
  2. RITONAVIR [Suspect]
     Indication: HIV INFECTION
     Dosage: 100 mg/12 hours
     Route: 065
  3. ABACAVIR [Suspect]
     Indication: HIV INFECTION
     Dosage: 300 mg/12 hours
     Route: 065
  4. ETRAVIRINE [Suspect]
     Indication: HIV INFECTION
     Dosage: 200 mg/12 hours
     Route: 065
  5. RALTEGRAVIR [Suspect]
     Indication: HIV INFECTION
     Dosage: 400 mg/12 hours
     Route: 065
  6. PENTAMIDINE [Concomitant]
     Indication: PROPHYLACTIC CHEMOTHERAPY
     Route: 065
  7. CLONAZEPAM [Concomitant]
     Dosage: 2 mg/24 hours
     Route: 065

REACTIONS (2)
  - Hypertensive encephalopathy [Recovering/Resolving]
  - Hypertensive crisis [Recovering/Resolving]
